FAERS Safety Report 24131030 (Version 1)
Quarter: 2024Q3

REPORT INFORMATION
  Report Type: Spontaneous
  Country: PL (occurrence: PL)
  Receive Date: 20240724
  Receipt Date: 20240724
  Transmission Date: 20241016
  Serious: Yes (Other)
  Sender: AUROBINDO
  Company Number: PL-AUROBINDO-AUR-APL-2024-035986

PATIENT
  Age: 28 Year
  Sex: Female

DRUGS (22)
  1. VENLAFAXINE [Suspect]
     Active Substance: VENLAFAXINE HYDROCHLORIDE
     Indication: Major depression
     Dosage: 375 MILLIGRAM, ONCE A DAY
     Route: 065
  2. VENLAFAXINE [Suspect]
     Active Substance: VENLAFAXINE HYDROCHLORIDE
     Indication: Post-traumatic stress disorder
  3. VENLAFAXINE [Suspect]
     Active Substance: VENLAFAXINE HYDROCHLORIDE
     Indication: Anorexia nervosa
  4. CHLORPROTHIXENE [Suspect]
     Active Substance: CHLORPROTHIXENE
     Indication: Major depression
     Dosage: UNK
     Route: 065
  5. CHLORPROTHIXENE [Suspect]
     Active Substance: CHLORPROTHIXENE
     Indication: Post-traumatic stress disorder
  6. CHLORPROTHIXENE [Suspect]
     Active Substance: CHLORPROTHIXENE
     Indication: Anorexia nervosa
  7. CLORAZEPATE DIPOTASSIUM [Suspect]
     Active Substance: CLORAZEPATE DIPOTASSIUM
     Indication: Major depression
     Dosage: UNK
     Route: 065
  8. CLORAZEPATE DIPOTASSIUM [Suspect]
     Active Substance: CLORAZEPATE DIPOTASSIUM
     Indication: Post-traumatic stress disorder
  9. CLORAZEPATE DIPOTASSIUM [Suspect]
     Active Substance: CLORAZEPATE DIPOTASSIUM
     Indication: Anorexia nervosa
  10. TIAPRIDE [Suspect]
     Active Substance: TIAPRIDE
     Indication: Major depression
     Dosage: UNK
     Route: 065
  11. TIAPRIDE [Suspect]
     Active Substance: TIAPRIDE
     Indication: Post-traumatic stress disorder
  12. TIAPRIDE [Suspect]
     Active Substance: TIAPRIDE
     Indication: Anorexia nervosa
  13. METOPROLOL [Concomitant]
     Active Substance: METOPROLOL
     Indication: Sinus tachycardia
     Dosage: 50 MILLIGRAM, ONCE A DAY
     Route: 065
  14. METOPROLOL [Concomitant]
     Active Substance: METOPROLOL
     Indication: Mitral valve prolapse
  15. QUETIAPINE [Concomitant]
     Active Substance: QUETIAPINE
     Indication: Psychotherapy
     Dosage: 100 MILLIGRAM, ONCE A DAY
     Route: 065
  16. LAMOTRIGINE [Concomitant]
     Active Substance: LAMOTRIGINE
     Indication: Psychotherapy
     Dosage: 200 MILLIGRAM, ONCE A DAY
     Route: 065
  17. TRAZODONE [Concomitant]
     Active Substance: TRAZODONE HYDROCHLORIDE
     Indication: Psychotherapy
     Dosage: 150 MILLIGRAM, ONCE A DAY
     Route: 065
  18. MIRTAZAPINE [Concomitant]
     Active Substance: MIRTAZAPINE
     Indication: Psychotherapy
     Dosage: 45 MILLIGRAM, ONCE A DAY
     Route: 065
  19. SERTRALINE [Concomitant]
     Active Substance: SERTRALINE HYDROCHLORIDE
     Indication: Psychotherapy
     Dosage: UNK
     Route: 065
  20. ATROPINE [Concomitant]
     Active Substance: ATROPINE
     Indication: Prophylaxis
     Dosage: 0.3-0.5 MG
     Route: 065
  21. ETOMIDATE [Concomitant]
     Active Substance: ETOMIDATE
     Indication: Prophylaxis
     Dosage: 16-20 MG
     Route: 065
  22. SUCCINYLCHOLINE [Concomitant]
     Active Substance: SUCCINYLCHOLINE
     Indication: Prophylaxis
     Dosage: 50 MILLIGRAM
     Route: 065

REACTIONS (1)
  - Drug ineffective [Unknown]
